FAERS Safety Report 9387542 (Version 1)
Quarter: 2013Q3

REPORT INFORMATION
  Report Type: Spontaneous
  Country: US (occurrence: US)
  Receive Date: 20130708
  Receipt Date: 20130708
  Transmission Date: 20140515
  Serious: Yes (Other)
  Sender: FDA-Public Use
  Company Number: US-PFIZER INC-2013198631

PATIENT
  Age: 37 Year
  Sex: Female
  Weight: 85 kg

DRUGS (8)
  1. LYRICA [Suspect]
     Indication: CEREBRAL PALSY
     Dosage: 25 MG, 2X/DAY
     Route: 048
     Dates: start: 20130702, end: 20130703
  2. LYRICA [Suspect]
     Indication: FIBROMYALGIA
  3. CYMBALTA [Concomitant]
     Dosage: 50 MG, 2X/DAY
  4. LAMICTAL [Concomitant]
     Dosage: 100 MG, 2X/DAY
  5. BACLOFEN [Concomitant]
     Dosage: 10 MG, 3X/DAY
  6. COLACE [Concomitant]
     Dosage: UNK, 1X/DAY
  7. SINGULAIR [Concomitant]
     Dosage: UNK, 1X/DAY
  8. ADDERALL [Concomitant]
     Indication: ATTENTION DEFICIT/HYPERACTIVITY DISORDER
     Dosage: UNK

REACTIONS (11)
  - Off label use [Not Recovered/Not Resolved]
  - Intentional drug misuse [Not Recovered/Not Resolved]
  - Suicidal ideation [Unknown]
  - Mental impairment [Not Recovered/Not Resolved]
  - Violence-related symptom [Not Recovered/Not Resolved]
  - Dissociative fugue [Not Recovered/Not Resolved]
  - Thinking abnormal [Not Recovered/Not Resolved]
  - Euphoric mood [Not Recovered/Not Resolved]
  - Fear [Not Recovered/Not Resolved]
  - Speech disorder [Not Recovered/Not Resolved]
  - Stress [Not Recovered/Not Resolved]
